FAERS Safety Report 11598817 (Version 1)
Quarter: 2015Q4

REPORT INFORMATION
  Report Type: Spontaneous
  Country: US (occurrence: US)
  Receive Date: 20151006
  Receipt Date: 20151006
  Transmission Date: 20160304
  Serious: No
  Sender: FDA-Public Use
  Company Number: US-TOLMAR INC.-1042637

PATIENT
  Age: 27 Year
  Sex: Female

DRUGS (1)
  1. ERYTHROMYCIN AND BENZOYL PEROXIDE [Suspect]
     Active Substance: BENZOYL PEROXIDE\ERYTHROMYCIN
     Route: 061
     Dates: start: 20150328

REACTIONS (4)
  - Rash [Not Recovered/Not Resolved]
  - Skin exfoliation [Unknown]
  - Skin burning sensation [Unknown]
  - Pruritus [Not Recovered/Not Resolved]

NARRATIVE: CASE EVENT DATE: 20150330
